FAERS Safety Report 4885349-0 (Version None)
Quarter: 2005Q4

REPORT INFORMATION
  Report Type: 
  Country: None (occurrence: None)
  Receive Date: 20051223
  Receipt Date: 20020927
  Transmission Date: 20060501
  Serious: Yes (Hospitalization, Other)
  Sender: FDA-Public Use
  Company Number: USA020921806

PATIENT
  Age: 40 Year
  Sex: Male
  Weight: 97 kg

DRUGS (14)
  1. HUMALOG [Suspect]
     Indication: DIABETES MELLITUS
     Dates: start: 20030701, end: 20050101
  2. HUMALOG MIX 75/25 [Suspect]
     Indication: DIABETES MELLITUS
     Dates: start: 20050101
  3. HUMULIN N [Suspect]
     Indication: DIABETES MELLITUS
     Dosage: 96 U/DAY
     Dates: start: 20011001, end: 20030701
  4. HUMULIN R [Suspect]
     Indication: DIABETES MELLITUS
     Dosage: 48 U/DAY
     Dates: start: 20011001, end: 20030701
  5. LANTUS [Concomitant]
  6. NEURONTIN [Concomitant]
  7. ULTRAM [Concomitant]
  8. ZYRTEC [Concomitant]
  9. LASIX [Concomitant]
  10. PRINIVIL [Concomitant]
  11. TOPAMAX [Concomitant]
  12. AMITRIPTYLINE HCL [Concomitant]
  13. LORTAB [Concomitant]
  14. NOVOLOG MIX [Concomitant]

REACTIONS (13)
  - BLOOD GLUCOSE INCREASED [None]
  - EYE HAEMORRHAGE [None]
  - EYE OPERATION [None]
  - HEADACHE [None]
  - HYPERTENSION [None]
  - HYPOTENSION [None]
  - NEUROPATHY [None]
  - OEDEMA PERIPHERAL [None]
  - OPTIC NERVE DISORDER [None]
  - PAIN [None]
  - SPINAL CORD DISORDER [None]
  - VASODILATATION [None]
  - VISUAL DISTURBANCE [None]
